FAERS Safety Report 8605457-8 (Version None)
Quarter: 2012Q3

REPORT INFORMATION
  Report Type: 
  Country: None (occurrence: None)
  Receive Date: 20120820
  Receipt Date: 20120810
  Transmission Date: 20120928
  Serious: Yes (Hospitalization)
  Sender: FDA-Public Use
  Company Number: US-ASTRAZENECA-2012SE56936

PATIENT
  Age: 48 Year
  Sex: Female
  Weight: 56.7 kg

DRUGS (7)
  1. NEXIUM [Suspect]
     Route: 048
  2. SEROQUEL [Suspect]
     Indication: SLEEP DISORDER
     Route: 048
     Dates: start: 20110601
  3. HYDROCHLOROTHIAZIDE [Concomitant]
  4. CRESTOR [Suspect]
     Indication: BLOOD CHOLESTEROL ABNORMAL
     Route: 048
  5. XANAX [Concomitant]
  6. NEXIUM [Suspect]
     Indication: IRRITABLE BOWEL SYNDROME
     Route: 048
     Dates: start: 20090101
  7. SEROQUEL [Suspect]
     Route: 048

REACTIONS (5)
  - ARTHRITIS [None]
  - INTENTIONAL DRUG MISUSE [None]
  - ANXIETY [None]
  - HEART RATE INCREASED [None]
  - ABDOMINAL PAIN UPPER [None]
